FAERS Safety Report 14217539 (Version 1)
Quarter: 2017Q4

REPORT INFORMATION
  Report Type: Spontaneous
  Country: FR (occurrence: FR)
  Receive Date: 20171123
  Receipt Date: 20171123
  Transmission Date: 20180321
  Serious: Yes (Other)
  Sender: FDA-Public Use
  Company Number: FR-MERCK KGAA-2034949

PATIENT
  Age: 67 Year
  Sex: Female

DRUGS (5)
  1. BIOMAG [Concomitant]
  2. GAVISCON [Concomitant]
     Active Substance: ALUMINUM HYDROXIDE\MAGNESIUM CARBONATE
  3. CRESTOR [Concomitant]
     Active Substance: ROSUVASTATIN CALCIUM
  4. DEDROGYL [Concomitant]
     Active Substance: CALCIFEDIOL
  5. NOVOTHYROX [Suspect]
     Active Substance: LEVOTHYROXINE SODIUM
     Indication: POST PROCEDURAL HYPOTHYROIDISM
     Dates: start: 201710

REACTIONS (9)
  - Thirst [None]
  - Burn oral cavity [None]
  - Dry mouth [None]
  - Polydipsia [None]
  - Mouth ulceration [Recovered/Resolved]
  - Oral discomfort [None]
  - Lip swelling [None]
  - Muscle twitching [None]
  - Weight decreased [None]

NARRATIVE: CASE EVENT DATE: 2017
